FAERS Safety Report 10590813 (Version 1)
Quarter: 2014Q4

REPORT INFORMATION
  Report Type: Spontaneous
  Country: US (occurrence: US)
  Receive Date: 20141118
  Receipt Date: 20141118
  Transmission Date: 20150529
  Serious: Yes (Death, Hospitalization, Other)
  Sender: FDA-Public Use
  Company Number: US-GLAXOSMITHKLINE-US2014GSK022908

PATIENT
  Sex: Female

DRUGS (1)
  1. AVANDIA [Suspect]
     Active Substance: ROSIGLITAZONE MALEATE
     Indication: DIABETES MELLITUS
     Dosage: UNK
     Dates: start: 19990830, end: 20040116

REACTIONS (7)
  - Coronary artery insufficiency [Fatal]
  - Fluid overload [Unknown]
  - Arrhythmia [Fatal]
  - Ischaemia [Unknown]
  - Bradyarrhythmia [Unknown]
  - Arteriosclerosis [Fatal]
  - Coronary artery disease [Unknown]
